FAERS Safety Report 17688564 (Version 1)
Quarter: 2020Q2

REPORT INFORMATION
  Report Type: Spontaneous
  Country: US (occurrence: US)
  Receive Date: 20200421
  Receipt Date: 20200421
  Transmission Date: 20200714
  Serious: Yes (Hospitalization)
  Sender: FDA-Public Use
  Company Number: US-009507513-2004USA004222

PATIENT
  Sex: Female

DRUGS (13)
  1. AMANTADINE. [Suspect]
     Active Substance: AMANTADINE HYDROCHLORIDE
     Indication: DYSKINESIA
     Dosage: 137 MG ONCE DAILY AT BEDTIME
     Route: 048
     Dates: start: 20200122
  2. SINEMET [Suspect]
     Active Substance: CARBIDOPA\LEVODOPA
     Dosage: 2 TABLETS SIX TIMES PER DAY
  3. AMANTADINE. [Suspect]
     Active Substance: AMANTADINE HYDROCHLORIDE
     Dosage: 274 MG ONCE DAILY AT BEDTIME
     Route: 048
     Dates: start: 20200129
  4. LEXAPRO [Concomitant]
     Active Substance: ESCITALOPRAM OXALATE
  5. COMTAN [Concomitant]
     Active Substance: ENTACAPONE
     Dosage: THREE TIMES DAILY
  6. LORAZEPAM. [Concomitant]
     Active Substance: LORAZEPAM
  7. ZOFRAN [Concomitant]
     Active Substance: ONDANSETRON HYDROCHLORIDE
  8. VENTOLIN [Concomitant]
     Active Substance: ALBUTEROL SULFATE
  9. SYNTHROID [Concomitant]
     Active Substance: LEVOTHYROXINE SODIUM
  10. COMTAN [Concomitant]
     Active Substance: ENTACAPONE
     Dosage: 200 MG, UNK
     Dates: end: 20200129
  11. COMTAN [Concomitant]
     Active Substance: ENTACAPONE
     Dosage: 200 MG, UNK
     Dates: start: 20200130
  12. COMTAN [Concomitant]
     Active Substance: ENTACAPONE
     Dosage: SIX TIMES DAILY
  13. REMERON [Concomitant]
     Active Substance: MIRTAZAPINE

REACTIONS (5)
  - Product use issue [Unknown]
  - Abdominal discomfort [Unknown]
  - Vomiting [Unknown]
  - Dehydration [Unknown]
  - Nausea [Unknown]

NARRATIVE: CASE EVENT DATE: 2020
